FAERS Safety Report 21387667 (Version 1)
Quarter: 2022Q3

REPORT INFORMATION
  Report Type: Spontaneous
  Country: DE (occurrence: None)
  Receive Date: 20220928
  Receipt Date: 20220928
  Transmission Date: 20221027
  Serious: Yes (Life-Threatening, Hospitalization, Other)
  Sender: FDA-Public Use
  Company Number: 2022A328322

PATIENT
  Sex: Female

DRUGS (1)
  1. XIGDUO XR [Suspect]
     Active Substance: DAPAGLIFLOZIN PROPANEDIOL\METFORMIN HYDROCHLORIDE
     Indication: Type 2 diabetes mellitus
     Dosage: 5 / 1000
     Route: 048
     Dates: start: 202207

REACTIONS (7)
  - Cerebrovascular accident [Unknown]
  - Seizure [Unknown]
  - Blood glucose increased [Unknown]
  - Muscle spasms [Unknown]
  - Dry mouth [Unknown]
  - Dry eye [Unknown]
  - Intentional product misuse [Unknown]

NARRATIVE: CASE EVENT DATE: 20220701
